FAERS Safety Report 8225338-1 (Version None)
Quarter: 2012Q1

REPORT INFORMATION
  Report Type: 
  Country: None (occurrence: None)
  Receive Date: 20120321
  Receipt Date: 20120202
  Transmission Date: 20120608
  Serious: Yes (Other)
  Sender: FDA-Public Use
  Company Number: CH-GLAXOSMITHKLINE-B0779064A

PATIENT
  Sex: Male
  Weight: 88 kg

DRUGS (5)
  1. SORAFENIB [Concomitant]
     Indication: RENAL CELL CARCINOMA
     Dates: start: 20100521, end: 20110608
  2. MAGNESIUM [Concomitant]
     Route: 048
  3. BISOPROLOL FUMARATE [Concomitant]
     Route: 048
  4. VOTRIENT [Suspect]
     Indication: METASTATIC RENAL CELL CARCINOMA
     Dosage: 800MG PER DAY
     Route: 048
     Dates: start: 20110628
  5. ADALAT [Concomitant]
     Route: 048

REACTIONS (1)
  - HYPOTHYROIDISM [None]
